FAERS Safety Report 18339240 (Version 1)
Quarter: 2020Q3

REPORT INFORMATION
  Report Type: Spontaneous
  Country: US (occurrence: US)
  Receive Date: 20200930
  Receipt Date: 20200930
  Transmission Date: 20201103
  Serious: Yes (Hospitalization)
  Sender: FDA-Public Use
  Company Number: None

PATIENT
  Age: 74 Year
  Sex: Male

DRUGS (1)
  1. SULFAMETHOXAZOLE/TRIMETHOPRIM (SULFAMETHOXAZOLE 800MG/TRIMETHOPRIM 160 [Suspect]
     Active Substance: SULFAMETHOXAZOLE\TRIMETHOPRIM
     Indication: URINARY TRACT INFECTION
     Route: 048
     Dates: start: 20200813, end: 20200821

REACTIONS (8)
  - Electrocardiogram T wave peaked [None]
  - Blood creatinine increased [None]
  - Blood potassium increased [None]
  - Palpitations [None]
  - Blood urea increased [None]
  - Drug interaction [None]
  - Electrocardiogram QRS complex prolonged [None]
  - Electrocardiogram RR interval prolonged [None]

NARRATIVE: CASE EVENT DATE: 20200821
